FAERS Safety Report 5090925-9 (Version None)
Quarter: 2006Q3

REPORT INFORMATION
  Report Type: 
  Country: None (occurrence: None)
  Receive Date: 20060823
  Receipt Date: 20060809
  Transmission Date: 20061208
  Serious: Yes (Death)
  Sender: FDA-Public Use
  Company Number: US200608002371

PATIENT
  Age: 45 Year
  Sex: Female

DRUGS (4)
  1. ZYPREXA [Suspect]
     Indication: AGITATION
     Dosage: 10 MG, OTHER, INTRAMUSCULAR
     Route: 030
     Dates: start: 20060801
  2. GEODON [Concomitant]
  3. ATIVAN [Concomitant]
  4. HALDOL [Concomitant]

REACTIONS (1)
  - DEATH [None]
